FAERS Safety Report 6991195 (Version 46)
Quarter: 2012Q4

REPORT INFORMATION
  Report Type: 
  Country: CA (occurrence: CA)
  Receive Date: 20090511
  Receipt Date: 20121108
  Transmission Date: 20130627
  Serious: Yes (Hospitalization, Other)
  Sender: FDA-Public Use
  Company Number: PHMT2007CA01366

PATIENT
  Age: 51 Year
  Sex: Female

DRUGS (6)
  1. SANDOSTATIN LAR [Suspect]
     Indication: PANCREATIC CARCINOMA
     Dosage: 30 mg, every 3 weeks
     Route: 030
     Dates: start: 20060626
  2. STATEX [Concomitant]
     Indication: PAIN
     Dosage: UNK UKN, UNK
  3. STEROIDS NOS [Concomitant]
     Dosage: UNK UKN, UNK
  4. OXYCOCET [Concomitant]
     Dosage: UNK UKN, UNK
  5. CIPRALEX [Concomitant]
  6. ANTIDEPRESSANTS [Concomitant]

REACTIONS (30)
  - Thrombosis [Not Recovered/Not Resolved]
  - Depression [Unknown]
  - Urinary tract infection [Unknown]
  - Pancreatic carcinoma recurrent [Not Recovered/Not Resolved]
  - Blood pressure decreased [Unknown]
  - Pain [Recovering/Resolving]
  - Vomiting [Unknown]
  - Pancreatic disorder [Not Recovered/Not Resolved]
  - Abdominal pain upper [Unknown]
  - Pancreatitis [Unknown]
  - Pyrexia [Recovering/Resolving]
  - Condition aggravated [Recovering/Resolving]
  - Abasia [Not Recovered/Not Resolved]
  - Eating disorder [Not Recovered/Not Resolved]
  - Neoplasm [Unknown]
  - Insomnia [Not Recovered/Not Resolved]
  - Back pain [Not Recovered/Not Resolved]
  - Headache [Unknown]
  - Nausea [Unknown]
  - Weight decreased [Unknown]
  - Anxiety [Unknown]
  - Hyperhidrosis [Unknown]
  - Thirst [Unknown]
  - Malaise [Unknown]
  - Cataract [Unknown]
  - Diarrhoea [Recovering/Resolving]
  - Asthenia [Unknown]
  - Decreased appetite [Not Recovered/Not Resolved]
  - Dehydration [Unknown]
  - Retching [Unknown]
